FAERS Safety Report 18931529 (Version 1)
Quarter: 2021Q1

REPORT INFORMATION
  Report Type: Spontaneous
  Country: US (occurrence: US)
  Receive Date: 20210223
  Receipt Date: 20210223
  Transmission Date: 20210420
  Serious: No
  Sender: FDA-Public Use
  Company Number: US-IGSA-SR10009876

PATIENT
  Sex: Female
  Weight: 61.8 kg

DRUGS (13)
  1. ALBUTEROL                          /00139501/ [Concomitant]
     Active Substance: ALBUTEROL
  2. FLORASTOR                          /00079701/ [Concomitant]
  3. PROLASTIN?C LIQUID [Suspect]
     Active Substance: .ALPHA.1-PROTEINASE INHIBITOR HUMAN
     Indication: ALPHA-1 ANTITRYPSIN DEFICIENCY
     Dosage: 3709 MG, Q.WK.
     Route: 042
  4. FLUTICASONE. [Concomitant]
     Active Substance: FLUTICASONE
  5. BETA GLUCAN [Concomitant]
     Active Substance: BETA GLUCAN
  6. CALCIUM + VITAMIN D                /00944201/ [Concomitant]
     Active Substance: CALCIUM CARBONATE\CHOLECALCIFEROL
  7. WIXELA INHUB [Concomitant]
     Active Substance: FLUTICASONE PROPIONATE\SALMETEROL XINAFOATE
  8. BENZONATATE. [Concomitant]
     Active Substance: BENZONATATE
  9. MULTIVITAMINS                      /00116001/ [Concomitant]
     Active Substance: VITAMINS
  10. COZAAR [Concomitant]
     Active Substance: LOSARTAN POTASSIUM
  11. LEVOTHYROXINE. [Concomitant]
     Active Substance: LEVOTHYROXINE
  12. VITAMIN B12 [Concomitant]
     Active Substance: CYANOCOBALAMIN
  13. SPIRIVA [Concomitant]
     Active Substance: TIOTROPIUM BROMIDE MONOHYDRATE

REACTIONS (5)
  - Cough [Recovering/Resolving]
  - Sneezing [Recovering/Resolving]
  - Chills [Recovering/Resolving]
  - Dyspnoea [Recovering/Resolving]
  - Muscular weakness [Recovering/Resolving]
